FAERS Safety Report 8560895-7 (Version None)
Quarter: 2012Q3

REPORT INFORMATION
  Report Type: 
  Country: None (occurrence: None)
  Receive Date: 20120802
  Receipt Date: 20120724
  Transmission Date: 20120928
  Serious: Yes (Hospitalization)
  Sender: FDA-Public Use
  Company Number: GB-PFIZER INC-2012179588

PATIENT
  Age: 42 Year
  Sex: Female

DRUGS (9)
  1. ALLOPURINOL [Concomitant]
     Dosage: 300 MG, UNK
     Dates: start: 20120216, end: 20120224
  2. FLUCONAZOLE [Concomitant]
     Dosage: 100 MG, UNK
     Dates: start: 20120216, end: 20120313
  3. DAUNORUBICIN HCL [Suspect]
     Indication: ACUTE MYELOID LEUKAEMIA
     Dosage: UNK
     Dates: start: 20120216, end: 20120223
  4. CYTARABINE [Suspect]
     Indication: ACUTE MYELOID LEUKAEMIA
     Dosage: UNK
     Dates: start: 20120216, end: 20120223
  5. CYTARABINE [Suspect]
     Indication: MYELODYSPLASTIC SYNDROME
  6. ACICLOVIR [Concomitant]
     Dosage: 400 MG, UNK
     Dates: start: 20120216
  7. EVEROLIMUS [Suspect]
     Indication: ACUTE MYELOID LEUKAEMIA
     Dosage: UNK
     Dates: start: 20120216, end: 20120223
  8. ONDANSETRON [Concomitant]
     Dosage: 8 MG, UNK
     Dates: start: 20120216, end: 20120224
  9. OMEPRAZOLE [Concomitant]
     Dosage: 20 MG, UNK
     Dates: start: 20120216, end: 20120224

REACTIONS (1)
  - ENDOCARDITIS [None]
